FAERS Safety Report 4748423-5 (Version None)
Quarter: 2005Q3

REPORT INFORMATION
  Report Type: 
  Country: None (occurrence: None)
  Receive Date: 20050818
  Receipt Date: 20050805
  Transmission Date: 20060218
  Serious: Yes (Hospitalization)
  Sender: FDA-Public Use
  Company Number: 2005-02866

PATIENT
  Age: 59 Year
  Sex: Male

DRUGS (3)
  1. TRELSTAR DEPOT [Suspect]
     Indication: PROSTATE CANCER
     Dosage: 3 MG, SINGLE, INTRAMUSCULAR
     Route: 030
     Dates: start: 20050410, end: 20050410
  2. TRELSTAR DEPOT [Suspect]
     Indication: PROSTATE CANCER
     Dosage: 3 MG, SINGLE, INTRAMUSCULAR
     Route: 030
     Dates: start: 20050508, end: 20050508
  3. EULEXIN [Suspect]
     Indication: PROSTATE CANCER
     Dosage: DAILY, ORAL
     Route: 048
     Dates: start: 20050403

REACTIONS (1)
  - INTESTINAL INFARCTION [None]
